FAERS Safety Report 5907675-6 (Version None)
Quarter: 2008Q3

REPORT INFORMATION
  Report Type: 
  Country: None (occurrence: None)
  Receive Date: 20080929
  Receipt Date: 20080915
  Transmission Date: 20090109
  Serious: Yes (Life-Threatening, Hospitalization, Other)
  Sender: FDA-Public Use
  Company Number: S08-GER-02195-01

PATIENT
  Age: 49 Year
  Sex: Female
  Weight: 80 kg

DRUGS (2)
  1. ESCITALOPRAM [Suspect]
     Dosage: 800 MG, ONCE, ORAL
     Route: 048
     Dates: start: 20080614, end: 20080614
  2. TRAMAL (100 MILLIGRAM, DROPS FOR ORAL USE) [Suspect]
     Dosage: 10000 MG, ONCE), ORAL
     Route: 048
     Dates: start: 20080614, end: 20080614

REACTIONS (5)
  - INTENTIONAL OVERDOSE [None]
  - OXYGEN SATURATION DECREASED [None]
  - RESPIRATORY DEPRESSION [None]
  - SOMNOLENCE [None]
  - SUICIDE ATTEMPT [None]
